FAERS Safety Report 4877271-0 (Version None)
Quarter: 2006Q1

REPORT INFORMATION
  Report Type: 
  Country: None (occurrence: None)
  Receive Date: 20060106
  Receipt Date: 20051223
  Transmission Date: 20060701
  Serious: Yes (Other)
  Sender: FDA-Public Use
  Company Number: PHBS2005BE18957

PATIENT
  Age: 26 Year
  Sex: Female
  Weight: 63.0046 kg

DRUGS (2)
  1. VISUDYNE [Suspect]
     Indication: MYOPIA
     Dates: start: 20051117, end: 20051117
  2. VISUDYNE [Suspect]
     Indication: MYOPIA
     Dates: start: 20050101, end: 20050101

REACTIONS (3)
  - ABORTION SPONTANEOUS [None]
  - DRUG EXPOSURE DURING PREGNANCY [None]
  - PREGNANCY [None]
